FAERS Safety Report 8773478 (Version 2)
Quarter: 2012Q4

REPORT INFORMATION
  Report Type: 
  Country: FR (occurrence: FR)
  Receive Date: 20120907
  Receipt Date: 20120907
  Transmission Date: 20130627
  Serious: Yes (Other)
  Sender: FDA-Public Use
  Company Number: PHHY2012FR028369

PATIENT
  Age: 60 Year
  Sex: Male
  Weight: 96 kg

DRUGS (5)
  1. TASIGNA [Suspect]
     Dosage: 600 mg, QD
     Route: 048
     Dates: start: 201102
  2. CELIPROLOL [Concomitant]
  3. LISINOPRIL [Concomitant]
  4. INEGY [Concomitant]
  5. AVONEX [Concomitant]

REACTIONS (2)
  - Peripheral arterial occlusive disease [Unknown]
  - Peripheral artery thrombosis [Unknown]
